FAERS Safety Report 11916788 (Version 1)
Quarter: 2016Q1

REPORT INFORMATION
  Report Type: Report from Study
  Country: CN (occurrence: CN)
  Receive Date: 20160114
  Receipt Date: 20160114
  Transmission Date: 20160526
  Serious: Yes (Death)
  Sender: FDA-Public Use
  Company Number: CN-ASTELLAS-2015US028313

PATIENT
  Age: 20 Year
  Sex: Male

DRUGS (6)
  1. XINGNAOJING INJECTION [Concomitant]
     Indication: HYPOXIC-ISCHAEMIC ENCEPHALOPATHY
     Dosage: 50 ML DAILY, TWICE DAILY
     Route: 042
     Dates: start: 20110403, end: 20110418
  2. OMEPRAZOLE. [Concomitant]
     Active Substance: OMEPRAZOLE
     Indication: GASTROINTESTINAL HAEMORRHAGE
     Dosage: 40 MG DAILY, TWICE DAILY
     Route: 042
     Dates: start: 20110419, end: 20110419
  3. PIPERACILLIN AND TAZOBACTAM [Concomitant]
     Active Substance: PIPERACILLIN SODIUM\TAZOBACTAM SODIUM
     Indication: PRODUCT USED FOR UNKNOWN INDICATION
     Dosage: 4.5 G DAILY, THRICE DAILY
     Route: 042
     Dates: start: 20110411, end: 20110415
  4. MICAFUNGIN [Suspect]
     Active Substance: MICAFUNGIN
     Indication: FUNGAL INFECTION
     Route: 042
     Dates: start: 20110411, end: 20110418
  5. MEROPENEM. [Concomitant]
     Active Substance: MEROPENEM
     Indication: LUNG INFECTION
     Dosage: 1 G DAILY, EVERY 8 HOURS
     Route: 042
     Dates: start: 20110403, end: 20110411
  6. CEFOPERAZONE-SHUBATAN [Concomitant]
     Indication: PRODUCT USED FOR UNKNOWN INDICATION
     Dosage: 3 G DAILY, TWICE DAILY
     Route: 042
     Dates: start: 20110415, end: 20110418

REACTIONS (1)
  - Gastrointestinal haemorrhage [Fatal]

NARRATIVE: CASE EVENT DATE: 20110419
